FAERS Safety Report 7493329-4 (Version None)
Quarter: 2011Q2

REPORT INFORMATION
  Report Type: 
  Country: None (occurrence: None)
  Receive Date: 20110520
  Receipt Date: 20110510
  Transmission Date: 20111010
  Serious: Yes (Other)
  Sender: FDA-Public Use
  Company Number: JP-PFIZER INC-2011076406

PATIENT
  Age: 70 Year
  Sex: Male

DRUGS (1)
  1. ARGATROBAN [Suspect]
     Indication: CEREBRAL INFARCTION
     Dosage: 60 MG, DAILY
     Route: 042
     Dates: start: 20110328

REACTIONS (1)
  - VASCULITIS [None]
